FAERS Safety Report 7572390-2 (Version None)
Quarter: 2011Q2

REPORT INFORMATION
  Report Type: 
  Country: None (occurrence: None)
  Receive Date: 20110624
  Receipt Date: 20110621
  Transmission Date: 20111010
  Serious: Yes (Death, Other)
  Sender: FDA-Public Use
  Company Number: PHHY2011AR55009

PATIENT
  Sex: Male

DRUGS (1)
  1. ZOLEDRONIC ACID [Suspect]
     Indication: OSTEOPOROSIS
     Route: 042
     Dates: start: 20090701

REACTIONS (6)
  - BLOOD URINE PRESENT [None]
  - METASTASES TO BONE [None]
  - RENAL NEOPLASM [None]
  - METASTASES TO LUNG [None]
  - HIP FRACTURE [None]
  - FALL [None]
